FAERS Safety Report 21229186 (Version 1)
Quarter: 2022Q3

REPORT INFORMATION
  Report Type: Spontaneous
  Country: US (occurrence: None)
  Receive Date: 20220818
  Receipt Date: 20220818
  Transmission Date: 20221026
  Serious: No
  Sender: FDA-Public Use
  Company Number: None

PATIENT
  Sex: Male

DRUGS (10)
  1. MYCAPSSA [Suspect]
     Active Substance: OCTREOTIDE
     Indication: Acromegaly
     Dosage: FREQUENCY : TWICE A DAY;?
     Route: 048
  2. MYCAPSSA [Suspect]
     Active Substance: OCTREOTIDE
     Indication: Gigantism
  3. JARDIANCE [Concomitant]
     Active Substance: EMPAGLIFLOZIN
  4. ELIQUIS [Concomitant]
     Active Substance: APIXABAN
  5. ENTRESTO [Concomitant]
     Active Substance: SACUBITRIL\VALSARTAN
  6. OMEPRAZOLE [Concomitant]
     Active Substance: OMEPRAZOLE
  7. TYLENOL [Concomitant]
     Active Substance: ACETAMINOPHEN
  8. ATORVASTATIN CALCIUM [Concomitant]
     Active Substance: ATORVASTATIN CALCIUM
  9. IBUPROFEN [Concomitant]
     Active Substance: IBUPROFEN
  10. METOPROLOL SUCCINATE [Concomitant]
     Active Substance: METOPROLOL SUCCINATE

REACTIONS (4)
  - Vomiting [None]
  - Therapy interrupted [None]
  - Malaise [None]
  - Abdominal discomfort [None]
